FAERS Safety Report 22266789 (Version 1)
Quarter: 2023Q2

REPORT INFORMATION
  Report Type: Spontaneous
  Country: US (occurrence: US)
  Receive Date: 20230428
  Receipt Date: 20230428
  Transmission Date: 20230721
  Serious: No
  Sender: FDA-Public Use
  Company Number: US-MYOVANT SCIENCES GMBH-2023MYSCI0400124

PATIENT
  Sex: Male

DRUGS (3)
  1. ORGOVYX [Suspect]
     Active Substance: RELUGOLIX
     Indication: Prostate cancer
     Dosage: 360 MILLIGRAM, ONE TIME DOSE
     Route: 048
     Dates: start: 20230215, end: 20230215
  2. ORGOVYX [Suspect]
     Active Substance: RELUGOLIX
     Dosage: 120 MILLIGRAM, QD
     Route: 048
     Dates: start: 20230216
  3. MULTIVITAMIN                       /07504101/ [Concomitant]
     Indication: Supplementation therapy
     Dosage: UNK, QD

REACTIONS (5)
  - Hot flush [Not Recovered/Not Resolved]
  - Arthralgia [Unknown]
  - Myalgia [Unknown]
  - Fatigue [Unknown]
  - Therapy interrupted [Unknown]
